FAERS Safety Report 9886574 (Version 1)
Quarter: 2014Q1

REPORT INFORMATION
  Report Type: Spontaneous
  Country: BE (occurrence: BE)
  Receive Date: 20140210
  Receipt Date: 20140210
  Transmission Date: 20141002
  Serious: Yes (Other)
  Sender: FDA-Public Use
  Company Number: BE-ELI_LILLY_AND_COMPANY-BE201402000409

PATIENT
  Sex: Male

DRUGS (3)
  1. CIALIS [Suspect]
     Indication: PRODUCT USED FOR UNKNOWN INDICATION
     Dosage: 5 MG, PRN
     Route: 065
     Dates: start: 2013
  2. CIALIS [Suspect]
     Dosage: 5 MG, QD
     Route: 065
     Dates: start: 20131214
  3. CIALIS [Suspect]
     Dosage: 1 DF, PRN
     Route: 065

REACTIONS (2)
  - Visual acuity reduced [Not Recovered/Not Resolved]
  - Wrong technique in drug usage process [Unknown]
